FAERS Safety Report 6162748-0 (Version None)
Quarter: 2009Q2

REPORT INFORMATION
  Report Type: 
  Country: None (occurrence: None)
  Receive Date: 20090421
  Receipt Date: 20080424
  Transmission Date: 20091009
  Serious: No
  Sender: FDA-Public Use
  Company Number: US-ASTRAZENECA-2008UW08414

PATIENT
  Age: 79 Year
  Sex: Female
  Weight: 52.2 kg

DRUGS (3)
  1. TOPROL-XL [Suspect]
     Indication: HYPERTENSION
     Route: 048
     Dates: start: 20080419
  2. ZANTAC [Concomitant]
  3. VITAMINS [Concomitant]

REACTIONS (5)
  - HEAD DISCOMFORT [None]
  - IRRITABILITY [None]
  - MOOD ALTERED [None]
  - MUSCULOSKELETAL PAIN [None]
  - NECK PAIN [None]
